FAERS Safety Report 5905998-8 (Version None)
Quarter: 2008Q4

REPORT INFORMATION
  Report Type: 
  Country: None (occurrence: None)
  Receive Date: 20081002
  Receipt Date: 20080930
  Transmission Date: 20090506
  Serious: Yes (Hospitalization)
  Sender: FDA-Public Use
  Company Number: A0749796A

PATIENT
  Age: 23 Year
  Sex: Female

DRUGS (1)
  1. ALLI [Suspect]
     Route: 048
     Dates: start: 20080801

REACTIONS (6)
  - ADVERSE EVENT [None]
  - CHOLELITHIASIS [None]
  - GALLBLADDER DISORDER [None]
  - INFLUENZA [None]
  - MUSCLE SPASMS [None]
  - NAUSEA [None]
